FAERS Safety Report 21452688 (Version 1)
Quarter: 2022Q4

REPORT INFORMATION
  Report Type: Spontaneous
  Country: CN (occurrence: None)
  Receive Date: 20221013
  Receipt Date: 20221013
  Transmission Date: 20230112
  Serious: Yes (Other)
  Sender: FDA-Public Use
  Company Number: CN-ROCHE-3196430

PATIENT
  Age: 51 Year
  Sex: Male
  Weight: 46 kg

DRUGS (2)
  1. HERCEPTIN [Suspect]
     Active Substance: TRASTUZUMAB
     Indication: Gastric cancer
     Route: 041
     Dates: start: 20200701
  2. CIMETIDINE [Concomitant]
     Active Substance: CIMETIDINE
     Indication: Gastric cancer
     Route: 041
     Dates: start: 20200701, end: 20200702

REACTIONS (2)
  - Hypersensitivity [Recovering/Resolving]
  - Muscle rigidity [Recovering/Resolving]

NARRATIVE: CASE EVENT DATE: 20200702
